FAERS Safety Report 4617049-6 (Version None)
Quarter: 2005Q1

REPORT INFORMATION
  Report Type: 
  Country: None (occurrence: None)
  Receive Date: 20050323
  Receipt Date: 20050316
  Transmission Date: 20050727
  Serious: Yes (Other)
  Sender: FDA-Public Use
  Company Number: PHFR2005GB01245

PATIENT
  Sex: Female

DRUGS (2)
  1. CO-DIOVAN [Suspect]
  2. CO-DYDRAMOL [Concomitant]

REACTIONS (2)
  - ACCIDENTAL EXPOSURE [None]
  - FALL [None]
